FAERS Safety Report 12521432 (Version 3)
Quarter: 2016Q3

REPORT INFORMATION
  Report Type: Spontaneous
  Country: IN (occurrence: IN)
  Receive Date: 20160701
  Receipt Date: 20160707
  Transmission Date: 20161109
  Serious: Yes (Disabling, Other)
  Sender: FDA-Public Use
  Company Number: IN-JNJFOC-20160627800

PATIENT
  Age: 40 Year
  Sex: Female

DRUGS (1)
  1. RISPERIDONE. [Suspect]
     Active Substance: RISPERIDONE
     Indication: SCHIZOPHRENIA
     Dosage: FOR THE PAST 1 YEAR
     Route: 065

REACTIONS (3)
  - Benign intracranial hypertension [Unknown]
  - Weight increased [Unknown]
  - Headache [Recovered/Resolved]
